FAERS Safety Report 9576688 (Version 1)
Quarter: 2013Q4

REPORT INFORMATION
  Report Type: Spontaneous
  Country: US (occurrence: US)
  Receive Date: 20131001
  Receipt Date: 20131001
  Transmission Date: 20140711
  Serious: No
  Sender: FDA-Public Use
  Company Number: US-AMGEN-USASP2013004385

PATIENT
  Sex: Female

DRUGS (8)
  1. ENBREL [Suspect]
     Indication: RHEUMATOID ARTHRITIS
     Dosage: 50 MG, QWK
     Route: 058
  2. ULTRAM [Concomitant]
     Dosage: 50 MG, UNK
  3. BENTYL [Concomitant]
     Dosage: 10 MG, UNK
  4. NORVASC [Concomitant]
     Dosage: 2.5 MG, UNK
  5. TRICOR                             /00090101/ [Concomitant]
     Dosage: 48 MG, UNK
  6. NEXIUM                             /01479303/ [Concomitant]
     Dosage: 40 MG, UNK
  7. HYDROCHLOROTH [Concomitant]
     Dosage: 12.5 MG, UNK
  8. ALEVE [Concomitant]
     Dosage: 220 MG, UNK

REACTIONS (5)
  - Influenza like illness [Unknown]
  - Tonsillar disorder [Unknown]
  - Injection site erythema [Unknown]
  - Injection site swelling [Unknown]
  - Injection site pain [Unknown]
